FAERS Safety Report 17144557 (Version 1)
Quarter: 2019Q4

REPORT INFORMATION
  Report Type: Spontaneous
  Country: DE (occurrence: DE)
  Receive Date: 20191212
  Receipt Date: 20191212
  Transmission Date: 20200122
  Serious: Yes (Hospitalization)
  Sender: FDA-Public Use
  Company Number: DE-SA-2019SA337959

PATIENT
  Age: 50 Year
  Sex: Male
  Weight: 103 kg

DRUGS (10)
  1. SALVIATHYMOL N [EUCALYPTUS GLOBULUS OIL;FOENICULUM VULGARE OIL;HERBAL [Concomitant]
     Dosage: NK GTT, NEED, DROPS
     Route: 048
  2. FLUOROURACIL. [Suspect]
     Active Substance: FLUOROURACIL
     Dosage: NK MG/KG/KG, ACCORDING TO THE SCHEME, MOST RECENTLY ON 02.07.2018,
     Route: 042
  3. NIVOLUMAB [Suspect]
     Active Substance: NIVOLUMAB
     Dosage: NK MG/KG/KG, ACCORDING TO THE SCHEME, MOST RECENTLY ON 02.07.2018,
     Route: 042
  4. LEUCOVORIN [FOLINIC ACID] [Suspect]
     Active Substance: LEUCOVORIN
     Dosage: NK MG/KG/KG, ACCORDING TO THE SCHEME, MOST RECENTLY ON 02.07.2018,
     Route: 042
  5. OXALIPLATIN. [Suspect]
     Active Substance: OXALIPLATIN
     Dosage: NK MG/KG/KG, ACCORDING TO THE SCHEME, MOST RECENTLY ON 02.07.2018
     Route: 042
  6. TRASTUZUMAB. [Suspect]
     Active Substance: TRASTUZUMAB
     Dosage: NK MG/KG/KG, ACCORDING TO THE SCHEME, MOST RECENTLY ON 02.07.2018,
     Route: 042
  7. ONDANSETRON [Concomitant]
     Active Substance: ONDANSETRON
     Dosage: 8 MG, NEED, UP TO 2X / DAY, TABLETS
     Route: 048
  8. DEXAMETHASON [DEXAMETHASONE] [Concomitant]
     Active Substance: DEXAMETHASONE
     Dosage: 8 MG, 1-0-0-0, ONLY 1-2 DAYS AFTER CHEMO, TABLETS
     Route: 048
  9. BEPANTHEN [DEXPANTHENOL] [Concomitant]
     Active Substance: DEXPANTHENOL
     Dosage: NK ML, 1-1-1-0
     Route: 048
  10. PANTOPRAZOL [PANTOPRAZOLE] [Concomitant]
     Active Substance: PANTOPRAZOLE
     Dosage: 40 MG, 1-0-0-0
     Route: 048

REACTIONS (4)
  - Tachycardia [Unknown]
  - Rash [Unknown]
  - Pyrexia [Unknown]
  - Hypotension [Unknown]
